FAERS Safety Report 17640852 (Version 5)
Quarter: 2020Q4

REPORT INFORMATION
  Report Type: Spontaneous
  Country: US (occurrence: US)
  Receive Date: 20200407
  Receipt Date: 20201020
  Transmission Date: 20210113
  Serious: No
  Sender: FDA-Public Use
  Company Number: US-PFIZER INC-2020096529

PATIENT
  Age: 50 Year
  Sex: Female

DRUGS (3)
  1. XELJANZ XR [Suspect]
     Active Substance: TOFACITINIB CITRATE
     Indication: RHEUMATOID ARTHRITIS
     Dosage: 11 MG, DAILY
     Route: 048
     Dates: start: 2019
  2. MOTRIN [Concomitant]
     Active Substance: IBUPROFEN
     Dosage: UNK
  3. PREDNISONE. [Concomitant]
     Active Substance: PREDNISONE
     Dosage: 10 MG, 2X/DAY

REACTIONS (9)
  - Blood urine present [Unknown]
  - Influenza [Unknown]
  - Gastrointestinal disorder [Unknown]
  - Arthralgia [Unknown]
  - Candida infection [Unknown]
  - Therapeutic product effect incomplete [Unknown]
  - Headache [Unknown]
  - Condition aggravated [Unknown]
  - Contusion [Unknown]

NARRATIVE: CASE EVENT DATE: 202010
